FAERS Safety Report 6236480-9 (Version None)
Quarter: 2009Q2

REPORT INFORMATION
  Report Type: 
  Country: None (occurrence: None)
  Receive Date: 20090619
  Receipt Date: 20090610
  Transmission Date: 20091009
  Serious: Yes (Other)
  Sender: FDA-Public Use
  Company Number: JP-PFIZER INC-2009219550

PATIENT
  Age: 42 Year

DRUGS (8)
  1. ZOLOFT [Suspect]
     Indication: DEPRESSION
     Dosage: 100 MG, 1X/DAY
     Route: 048
     Dates: start: 20070512
  2. AMOXAN [Suspect]
     Dosage: 25 MG, 3X/DAY
     Route: 048
  3. CHLORPROMAZINE [Suspect]
     Indication: DEPRESSION
     Dosage: 12.5 MG, UNK
     Route: 048
  4. ZETIA [Concomitant]
     Route: 048
  5. ROHYPNOL [Concomitant]
     Dosage: UNK
     Route: 048
     Dates: start: 20070512
  6. BENZALIN [Concomitant]
     Dosage: UNK
     Route: 048
     Dates: start: 20070512
  7. SOLANAX [Concomitant]
     Dosage: UNK
     Route: 048
     Dates: start: 20070512
  8. ADALAT [Concomitant]
     Route: 048
     Dates: start: 20080830, end: 20090205

REACTIONS (3)
  - BLOOD TRIGLYCERIDES INCREASED [None]
  - LOSS OF CONSCIOUSNESS [None]
  - PRINZMETAL ANGINA [None]
